FAERS Safety Report 24286986 (Version 1)
Quarter: 2024Q3

REPORT INFORMATION
  Report Type: Report from Study
  Country: DE (occurrence: DE)
  Receive Date: 20240905
  Receipt Date: 20240905
  Transmission Date: 20241017
  Serious: Yes (Hospitalization)
  Sender: BAXTER
  Company Number: DE-BAXTER-2024BAX023915

PATIENT
  Sex: Male

DRUGS (9)
  1. DOXORUBICIN [Suspect]
     Active Substance: DOXORUBICIN
     Indication: Hodgkin^s disease
     Dosage: 97.7 MILLIGRAM/SQ, CYCLE 2, LAST DOSE, ONGOING
     Route: 065
     Dates: start: 20200811
  2. CYCLOPHOSPHAMIDE [Suspect]
     Active Substance: CYCLOPHOSPHAMIDE
     Indication: Hodgkin^s disease
     Dosage: 2686 MILLIGRAM/SQ, CYCLE 2, LAST DOSE, ONGOING
     Route: 065
     Dates: start: 20200811
  3. BRENTUXIMAB VEDOTIN [Suspect]
     Active Substance: BRENTUXIMAB VEDOTIN
     Indication: Hodgkin^s disease
     Dosage: 180, CYCLE 2, LAST DOSE, ONGOING
     Route: 065
     Dates: start: 20200810
  4. ETOPOSIDE [Suspect]
     Active Substance: ETOPOSIDE
     Indication: Hodgkin^s disease
     Dosage: 915.9 MILLIGRAM/SQ, ONGOING
     Route: 065
     Dates: start: 20200811
  5. ETOPOSIDE [Suspect]
     Active Substance: ETOPOSIDE
     Dosage: UNK, CYCLE 2, LAST DOSE
     Route: 065
     Dates: start: 20200813, end: 20200813
  6. DACARBAZINE [Suspect]
     Active Substance: DACARBAZINE
     Indication: Hodgkin^s disease
     Dosage: 1221.2 MG/M2, ONGOING
     Route: 065
     Dates: start: 20200812
  7. DACARBAZINE [Suspect]
     Active Substance: DACARBAZINE
     Dosage: UNK, CYCLE 2, LAST DOSE
     Route: 065
     Dates: start: 20200813
  8. DEXAMETHASONE [Suspect]
     Active Substance: DEXAMETHASONE
     Indication: Hodgkin^s disease
     Dosage: 160, ONGOING
     Route: 065
     Dates: start: 20200811
  9. DEXAMETHASONE [Suspect]
     Active Substance: DEXAMETHASONE
     Dosage: UNK, CYCLE 2. LAST DOSE
     Route: 065
     Dates: start: 20200814

REACTIONS (2)
  - Atrial fibrillation [Recovered/Resolved]
  - Leukopenia [Recovered/Resolved]

NARRATIVE: CASE EVENT DATE: 20200817
